FAERS Safety Report 8905697 (Version 2)
Quarter: 2012Q4

REPORT INFORMATION
  Report Type: 
  Country: GB (occurrence: GB)
  Receive Date: 20121109
  Receipt Date: 20121130
  Transmission Date: 20130627
  Serious: Yes (Other)
  Sender: FDA-Public Use
  Company Number: GB-WATSON-2012-18735

PATIENT
  Age: 63 Year
  Sex: Male
  Weight: 92 kg

DRUGS (2)
  1. ROPINIROLE HYDROCHLORIDE (UNKNOWN) [Suspect]
     Indication: PARKINSON^S DISEASE
     Dosage: 24 mg, unknown
     Route: 048
     Dates: start: 2010
  2. CO-CARELDOPA [Concomitant]
     Indication: PRODUCT USED FOR UNKNOWN INDICATION
     Dosage: Unknown
     Route: 065

REACTIONS (2)
  - Impulse-control disorder [Not Recovered/Not Resolved]
  - Libido increased [Not Recovered/Not Resolved]
